FAERS Safety Report 6307778-0 (Version None)
Quarter: 2009Q3

REPORT INFORMATION
  Report Type: 
  Country: None (occurrence: None)
  Receive Date: 20090813
  Receipt Date: 20090807
  Transmission Date: 20100115
  Serious: Yes (Death)
  Sender: FDA-Public Use
  Company Number: US-NOVOPROD-290340

PATIENT
  Sex: Male
  Weight: 31.1 kg

DRUGS (5)
  1. NORDITROPIN NORDIFLEX [Suspect]
     Indication: GROWTH HORMONE DEFICIENCY
     Dosage: 1.8 MG, QD AT H.S.
     Route: 058
     Dates: start: 20060101, end: 20090728
  2. IMMUNOSUPPRESSANTS [Concomitant]
     Indication: HEART TRANSPLANT
     Dosage: UNKNOWN
  3. PREDNISONE [Concomitant]
     Indication: AORTIC CALCIFICATION
     Dosage: UNKNOWN
     Route: 048
  4. CARDIAC THERAPY [Concomitant]
     Indication: CARDIAC VALVE DISEASE
     Dosage: UNKNOWN
  5. RENAL [Concomitant]
     Indication: RENAL FAILURE CHRONIC
     Dosage: UNKNOWN

REACTIONS (1)
  - OPERATIVE HAEMORRHAGE [None]
